FAERS Safety Report 24235866 (Version 2)
Quarter: 2024Q4

REPORT INFORMATION
  Report Type: Report from Study
  Country: CA (occurrence: CA)
  Receive Date: 20240822
  Receipt Date: 20241017
  Transmission Date: 20250115
  Serious: Yes (Other)
  Sender: JOHNSON AND JOHNSON
  Company Number: CA-JNJFOC-20240850313

PATIENT
  Age: 37 Year
  Sex: Female
  Weight: 107 kg

DRUGS (1)
  1. REMICADE [Suspect]
     Active Substance: INFLIXIMAB
     Indication: Crohn^s disease
     Dosage: 24D027 03/27
     Route: 041

REACTIONS (6)
  - Crohn^s disease [Unknown]
  - Dizziness [Not Recovered/Not Resolved]
  - Staphylococcal infection [Recovered/Resolved]
  - Serum ferritin decreased [Recovering/Resolving]
  - Urticaria [Recovering/Resolving]
  - Inappropriate schedule of product administration [Unknown]

NARRATIVE: CASE EVENT DATE: 20240709
